FAERS Safety Report 8947725 (Version 1)
Quarter: 2012Q4

REPORT INFORMATION
  Report Type: Spontaneous
  Country: FR (occurrence: None)
  Receive Date: 20121127
  Receipt Date: 20121127
  Transmission Date: 20130627
  Serious: Yes (Death, Life-Threatening, Hospitalization)
  Sender: FDA-Public Use
  Company Number: DSA_61042_2012

PATIENT
  Age: 48 Year
  Sex: Male

DRUGS (16)
  1. FLAGYL [Suspect]
     Indication: PRODUCT USED FOR UNKNOWN INDICATION
     Dosage: DF
     Dates: start: 20120626, end: 20120702
  2. FLAGYL [Suspect]
     Indication: PRODUCT USED FOR UNKNOWN INDICATION
     Dates: start: 20120728
  3. OGASTORO [Suspect]
     Indication: PRODUCT USED FOR UNKNOWN INDICATION
     Dosage: DF
     Dates: start: 20120716, end: 20120730
  4. COLIMYCINE [Suspect]
     Indication: RESPIRATORY DISTRESS
     Dosage: DF
     Dates: start: 20120709, end: 20120731
  5. LASILIX [Suspect]
     Indication: PRODUCT USED FOR UNKNOWN INDICATION
     Dosage: (DF Intravenous (not otherwise specified)
     Dates: start: 20120703, end: 20120709
  6. LASILIX [Suspect]
     Indication: PRODUCT USED FOR UNKNOWN INDICATION
     Dosage: (DF Intravenous (not otherwise specified)
     Dates: start: 20120721, end: 20120724
  7. LASILIX [Suspect]
     Indication: PRODUCT USED FOR UNKNOWN INDICATION
     Dosage: (DF Intravenous (not otherwise specified)
     Dates: start: 20120727, end: 20120731
  8. HEPARIN (HEPARIN) [Suspect]
     Indication: PRODUCT USED FOR UNKNOWN INDICATION
     Dosage: (DF Intravenous (not otherwise specified)
     Dates: start: 20120701, end: 20120707
  9. HEPARIN (HEPARIN) [Suspect]
     Indication: PRODUCT USED FOR UNKNOWN INDICATION
     Dosage: (DF Intravenous (not otherwise specified)
     Dates: start: 20120721, end: 20120725
  10. HEPARIN (HEPARIN) [Suspect]
     Indication: PRODUCT USED FOR UNKNOWN INDICATION
     Dosage: (DF Intravenous (not otherwise specified)
     Dates: start: 20120727
  11. MERONEM [Suspect]
     Indication: PRODUCT USED FOR UNKNOWN INDICATION
     Dosage: (DF Intravenous (not otherwise specified)
     Dates: start: 20120710, end: 20120716
  12. MERONEM [Suspect]
     Indication: PRODUCT USED FOR UNKNOWN INDICATION
     Dosage: (DF Intravenous (not otherwise specified)
     Dates: start: 20120726, end: 20120803
  13. IBUPROFEN [Concomitant]
  14. AMIKACIN [Concomitant]
  15. PIVALONE [Concomitant]
  16. PARACETAMOL [Concomitant]

REACTIONS (16)
  - Fall [None]
  - Epistaxis [None]
  - Haemoptysis [None]
  - Jaundice [None]
  - White blood cell count increased [None]
  - Thrombocytopenia [None]
  - Cholestasis [None]
  - Cell death [None]
  - Renal failure acute [None]
  - Cardio-respiratory arrest [None]
  - Leptospirosis [None]
  - Eosinophilia [None]
  - Pancytopenia [None]
  - Haemodynamic instability [None]
  - Acute respiratory distress syndrome [None]
  - Drug reaction with eosinophilia and systemic symptoms [None]
